FAERS Safety Report 10630720 (Version 2)
Quarter: 2014Q4

REPORT INFORMATION
  Report Type: Spontaneous
  Country: US (occurrence: US)
  Receive Date: 20141205
  Receipt Date: 20141205
  Transmission Date: 20150529
  Serious: Yes (Other)
  Sender: FDA-Public Use
  Company Number: US-BRISTOL-MYERS SQUIBB COMPANY-21361183

PATIENT
  Age: 70 Year
  Sex: Male

DRUGS (1)
  1. SPRYCEL [Suspect]
     Active Substance: DASATINIB
     Indication: CHRONIC MYELOID LEUKAEMIA
     Dosage: 100 MG TABS
     Route: 048
     Dates: start: 20131122

REACTIONS (7)
  - Haemoglobin decreased [Unknown]
  - Fatigue [Unknown]
  - Blood pressure increased [Unknown]
  - Decreased appetite [Unknown]
  - Weight decreased [Unknown]
  - General physical health deterioration [Unknown]
  - Depression [Unknown]
